FAERS Safety Report 15280778 (Version 4)
Quarter: 2019Q1

REPORT INFORMATION
  Report Type: Report from Study
  Country: CA (occurrence: CA)
  Receive Date: 20180815
  Receipt Date: 20190212
  Transmission Date: 20190417
  Serious: Yes (Hospitalization)
  Sender: FDA-Public Use
  Company Number: PHHY2018CA029306

PATIENT
  Age: 83 Year
  Sex: Male

DRUGS (2)
  1. MEKINIST [Suspect]
     Active Substance: TRAMETINIB DIMETHYL SULFOXIDE
     Indication: METASTATIC MALIGNANT MELANOMA
     Dosage: 2 MG, UNK
     Route: 048
     Dates: start: 20180613, end: 20180907
  2. TAFINLAR [Suspect]
     Active Substance: DABRAFENIB MESYLATE
     Indication: METASTATIC MALIGNANT MELANOMA
     Dosage: 300 MG, UNK
     Route: 048
     Dates: start: 20180613, end: 20180907

REACTIONS (14)
  - Skin lesion [Unknown]
  - Dehydration [Unknown]
  - Asthenia [Unknown]
  - Drug intolerance [Unknown]
  - Tongue discolouration [Unknown]
  - Dysphagia [Unknown]
  - Blood glucose increased [Unknown]
  - Constipation [Unknown]
  - Skin disorder [Unknown]
  - Dry mouth [Unknown]
  - Fatigue [Unknown]
  - Ulcer [Unknown]
  - Feeling cold [Unknown]
  - Decreased appetite [Unknown]

NARRATIVE: CASE EVENT DATE: 20180726
